FAERS Safety Report 8368986-0 (Version None)
Quarter: 2012Q2

REPORT INFORMATION
  Report Type: 
  Country: None (occurrence: None)
  Receive Date: 20120518
  Receipt Date: 20120514
  Transmission Date: 20120825
  Serious: No
  Sender: FDA-Public Use
  Company Number: US-PFIZER INC-2012117737

PATIENT
  Sex: Female

DRUGS (2)
  1. ZIPRASIDONE HCL [Suspect]
     Dosage: UNK
  2. GEODON [Suspect]
     Dosage: UNK

REACTIONS (2)
  - VISUAL IMPAIRMENT [None]
  - DRUG INEFFECTIVE [None]
